FAERS Safety Report 6375831-1 (Version None)
Quarter: 2009Q3

REPORT INFORMATION
  Report Type: 
  Country: None (occurrence: None)
  Receive Date: 20090924
  Receipt Date: 20090916
  Transmission Date: 20100115
  Serious: Yes (Other)
  Sender: FDA-Public Use
  Company Number: US-ELI_LILLY_AND_COMPANY-US200909003925

PATIENT
  Age: 60 Year
  Sex: Female

DRUGS (2)
  1. HUMATROPE [Suspect]
     Dosage: UNK, UNK 3 CLICKS
     Dates: start: 20090101
  2. ACTOS                                   /AUS/ [Concomitant]
     Dosage: UNK, UNKNOWN

REACTIONS (5)
  - ABNORMAL BEHAVIOUR [None]
  - DEPRESSED LEVEL OF CONSCIOUSNESS [None]
  - FALL [None]
  - PARTIAL SEIZURES [None]
  - ROAD TRAFFIC ACCIDENT [None]
